FAERS Safety Report 5214134-5 (Version None)
Quarter: 2007Q1

REPORT INFORMATION
  Report Type: 
  Country: None (occurrence: None)
  Receive Date: 20070116
  Receipt Date: 20070104
  Transmission Date: 20070707
  Serious: Yes (Death, Life-Threatening, Hospitalization)
  Sender: FDA-Public Use
  Company Number: HQWYE192217OCT06

PATIENT
  Age: 70 Year
  Sex: Male

DRUGS (6)
  1. INDERAL [Suspect]
     Indication: HYPERTENSION
     Dosage: 80 MG 1X PER 1 DAY ORAL
     Route: 048
     Dates: start: 20010101, end: 20061005
  2. LANSOPRAZOLE [Suspect]
     Indication: BARRETT'S OESOPHAGUS
     Dosage: 15 MG 1X PER 1 DAY ORAL
     Route: 048
     Dates: start: 20010101, end: 20061005
  3. CETIRIZINE (CETIRIZINE) [Concomitant]
  4. THIAMINE (THIAMINE) [Concomitant]
  5. VITAMIN B (VITAMIN B) [Concomitant]
  6. ASCORBIC ACID (ASCORIB ACID) [Concomitant]

REACTIONS (2)
  - THROMBOCYTOPENIA [None]
  - THROMBOTIC STROKE [None]
